FAERS Safety Report 5373209-0 (Version None)
Quarter: 2007Q2

REPORT INFORMATION
  Report Type: 
  Country: None (occurrence: None)
  Receive Date: 20070628
  Receipt Date: 20070620
  Transmission Date: 20071010
  Serious: Yes (Death, Other)
  Sender: FDA-Public Use
  Company Number: HQWYE712120JUN07

PATIENT
  Age: 82 Year
  Sex: Male

DRUGS (2)
  1. AMIODARONE HCL [Suspect]
     Route: 048
     Dates: start: 20070502, end: 20070516
  2. AMIODARONE HCL [Suspect]
     Route: 048
     Dates: start: 20070517

REACTIONS (2)
  - HYPOTHYROIDISM [None]
  - PULMONARY FIBROSIS [None]
